FAERS Safety Report 6774584-2 (Version None)
Quarter: 2010Q2

REPORT INFORMATION
  Report Type: 
  Country: None (occurrence: None)
  Receive Date: 20100617
  Receipt Date: 20100604
  Transmission Date: 20101027
  Serious: Yes (Hospitalization)
  Sender: FDA-Public Use
  Company Number: IT-CELGENEUS-083-C5013-10060395

PATIENT
  Sex: Female
  Weight: 70.5 kg

DRUGS (13)
  1. CC-5013 [Suspect]
     Indication: CHRONIC LYMPHOCYTIC LEUKAEMIA
     Route: 048
     Dates: start: 20100531, end: 20100603
  2. METFORMIN HCL [Concomitant]
     Indication: DIABETES MELLITUS
     Route: 048
     Dates: start: 19900101
  3. METFORAL [Concomitant]
     Indication: DIABETES MELLITUS
     Route: 048
     Dates: start: 19900101
  4. ACARBOSE [Concomitant]
     Indication: DIABETES MELLITUS
     Route: 048
     Dates: start: 19900101
  5. GLIMEPIRIDE [Concomitant]
     Indication: DIABETES MELLITUS
     Route: 048
     Dates: start: 20060101
  6. CRESTOR [Concomitant]
     Indication: HYPERCHOLESTEROLAEMIA
     Route: 048
     Dates: start: 20070101
  7. ZYLORIC [Concomitant]
     Indication: PROPHYLAXIS
     Route: 048
     Dates: start: 20100528
  8. ASPIRIN [Concomitant]
     Indication: PLATELET AGGREGATION INHIBITION
     Route: 048
     Dates: start: 20090101
  9. PARIET [Concomitant]
     Indication: GASTRITIS PROPHYLAXIS
     Route: 048
     Dates: start: 20090101
  10. LOSAPREX [Concomitant]
     Indication: HYPERTENSION
     Route: 048
     Dates: start: 20080101
  11. SEQUACOR [Concomitant]
     Indication: HYPERTENSION
     Route: 048
     Dates: start: 20080101
  12. LORAZEPAM [Concomitant]
     Indication: INSOMNIA
     Route: 048
     Dates: start: 20070101
  13. ACETAMINOPHEN [Concomitant]
     Route: 048
     Dates: start: 20100601, end: 20100601

REACTIONS (1)
  - BLOOD CREATININE INCREASED [None]
